FAERS Safety Report 9998506 (Version 1)
Quarter: 2014Q1

REPORT INFORMATION
  Report Type: Spontaneous
  Country: US (occurrence: US)
  Receive Date: 20140312
  Receipt Date: 20140312
  Transmission Date: 20141002
  Serious: No
  Sender: FDA-Public Use
  Company Number: US-BIOGENIDEC-2014BI018654

PATIENT
  Age: 58 Year
  Sex: Female

DRUGS (20)
  1. TECFIDERA [Suspect]
     Indication: MULTIPLE SCLEROSIS
     Route: 048
     Dates: start: 20131112, end: 20131118
  2. TECFIDERA [Suspect]
     Indication: MULTIPLE SCLEROSIS
     Route: 048
     Dates: start: 20131119
  3. ATENOLOL [Concomitant]
  4. MECLIZINE [Concomitant]
  5. ZOCOR [Concomitant]
  6. LEVOTHYROXINE [Concomitant]
  7. VITAMIN D [Concomitant]
  8. PREVACID [Concomitant]
  9. TRAZODONE [Concomitant]
  10. PAXIL [Concomitant]
  11. POTASSIUM [Concomitant]
  12. MAGNESIUM [Concomitant]
  13. FOLIC ACID [Concomitant]
  14. TIZANIDINE [Concomitant]
  15. OXYCODONE [Concomitant]
  16. BENTYL [Concomitant]
  17. PROPRANOLOL [Concomitant]
  18. HYOSCYAMINE [Concomitant]
  19. ASPIRIN [Concomitant]
  20. LISINOPRIL [Concomitant]

REACTIONS (5)
  - Eye pain [Not Recovered/Not Resolved]
  - Lacrimation increased [Not Recovered/Not Resolved]
  - Eye pruritus [Unknown]
  - Eye disorder [Unknown]
  - Flushing [Not Recovered/Not Resolved]
